FAERS Safety Report 18536391 (Version 1)
Quarter: 2020Q4

REPORT INFORMATION
  Report Type: Spontaneous
  Country: GB (occurrence: GB)
  Receive Date: 20201124
  Receipt Date: 20201124
  Transmission Date: 20210114
  Serious: Yes (Other)
  Sender: FDA-Public Use
  Company Number: GB-SUN PHARMACEUTICAL INDUSTRIES LTD-2020R1-267728

PATIENT
  Age: 35 Year
  Sex: Male
  Weight: 80 kg

DRUGS (2)
  1. ZINERYT [Concomitant]
     Indication: PRODUCT USED FOR UNKNOWN INDICATION
     Dosage: UNK
     Route: 065
  2. DUAC [Suspect]
     Active Substance: BENZOYL PEROXIDE\CLINDAMYCIN PHOSPHATE
     Indication: ACNE
     Dosage: 2 DOSAGE FORM, QD
     Route: 061
     Dates: start: 20201021, end: 20201021

REACTIONS (4)
  - Erythema [Not Recovered/Not Resolved]
  - Skin reaction [Not Recovered/Not Resolved]
  - Skin irritation [Not Recovered/Not Resolved]
  - Pain of skin [Not Recovered/Not Resolved]

NARRATIVE: CASE EVENT DATE: 20201021
